FAERS Safety Report 14674650 (Version 2)
Quarter: 2018Q3

REPORT INFORMATION
  Report Type: Spontaneous
  Country: US (occurrence: US)
  Receive Date: 20180323
  Receipt Date: 20180716
  Transmission Date: 20181010
  Serious: Yes (Hospitalization)
  Sender: FDA-Public Use
  Company Number: US-DSJP-DSU-2017-137211

PATIENT

DRUGS (5)
  1. BENICAR HCT [Suspect]
     Active Substance: HYDROCHLOROTHIAZIDE\OLMESARTAN MEDOXOMIL
     Indication: PRODUCT USED FOR UNKNOWN INDICATION
     Dosage: 40/12.5MG, BID
     Route: 048
     Dates: start: 20060403, end: 20130530
  2. BENICAR HCT [Suspect]
     Active Substance: HYDROCHLOROTHIAZIDE\OLMESARTAN MEDOXOMIL
     Dosage: HALF TABLET
     Dates: start: 20060403, end: 20130530
  3. BENICAR HCT [Suspect]
     Active Substance: HYDROCHLOROTHIAZIDE\OLMESARTAN MEDOXOMIL
     Dosage: 40/25MG, UNK
     Dates: start: 20060403, end: 20130530
  4. AZOR [Suspect]
     Active Substance: AMLODIPINE BESYLATE\OLMESARTAN MEDOXOMIL
     Indication: PRODUCT USED FOR UNKNOWN INDICATION
     Dosage: 5/20 MG, UNK
     Dates: end: 20130530
  5. BENICAR [Suspect]
     Active Substance: OLMESARTAN MEDOXOMIL
     Indication: PRODUCT USED FOR UNKNOWN INDICATION
     Dosage: TWO TABLETS (DOSE UNKNOWN), QD
     Dates: start: 20060403, end: 20130530

REACTIONS (10)
  - Gastric polyps [Recovered/Resolved]
  - Duodenal ulcer [Unknown]
  - Gastroenteritis viral [Unknown]
  - Gastrooesophageal reflux disease [Unknown]
  - Drug administration error [Unknown]
  - Constipation [Unknown]
  - Dizziness [Unknown]
  - Diverticulum [Not Recovered/Not Resolved]
  - Sprue-like enteropathy [Recovering/Resolving]
  - Cholelithiasis [Unknown]

NARRATIVE: CASE EVENT DATE: 2007
